FAERS Safety Report 18257122 (Version 1)
Quarter: 2020Q3

REPORT INFORMATION
  Report Type: Spontaneous
  Country: US (occurrence: US)
  Receive Date: 20200911
  Receipt Date: 20200911
  Transmission Date: 20201103
  Serious: No
  Sender: FDA-Public Use
  Company Number: US-JNJFOC-20200911653

PATIENT

DRUGS (3)
  1. OGX 011 [Concomitant]
     Indication: HAIR TEXTURE ABNORMAL
     Dosage: 3?4X/WEEK, JUST ONCE ON THE DAYS IT IS USED IN THE MORNING, AMOUNT APPROXIMATELY THE SIZE OF A PENNY
     Route: 061
     Dates: start: 20200801
  2. LORATADINE. [Concomitant]
     Active Substance: LORATADINE
     Indication: URTICARIA
     Dosage: FOR 6 DAYS
     Route: 065
     Dates: start: 202008
  3. FAMOTIDINE. [Suspect]
     Active Substance: FAMOTIDINE
     Indication: URTICARIA
     Dosage: FOR 4 DAYS
     Route: 065
     Dates: start: 202008

REACTIONS (3)
  - Product use in unapproved indication [Unknown]
  - Therapeutic response unexpected [Unknown]
  - Off label use [Unknown]

NARRATIVE: CASE EVENT DATE: 202008
